FAERS Safety Report 8766518 (Version 1)
Quarter: 2012Q4

REPORT INFORMATION
  Report Type: 
  Country: US (occurrence: US)
  Receive Date: 20120905
  Receipt Date: 20120905
  Transmission Date: 20130627
  Serious: No
  Sender: FDA-Public Use
  Company Number: US-ASTRAZENECA-2012SE37471

PATIENT
  Age: 46 Year
  Sex: Female

DRUGS (1)
  1. TOPROL XL [Suspect]
     Dosage: GENERIC
     Route: 048

REACTIONS (5)
  - Angina pectoris [Unknown]
  - Heart rate increased [Unknown]
  - Arthropathy [Unknown]
  - Chest discomfort [Unknown]
  - Drug ineffective [Unknown]
